FAERS Safety Report 16297334 (Version 1)
Quarter: 2019Q2

REPORT INFORMATION
  Report Type: Spontaneous
  Country: US (occurrence: US)
  Receive Date: 20190510
  Receipt Date: 20190510
  Transmission Date: 20190711
  Serious: No
  Sender: FDA-Public Use
  Company Number: US-TAKEDA-2019TUS026153

PATIENT
  Sex: Female
  Weight: 56.69 kg

DRUGS (3)
  1. POMALYST [Suspect]
     Active Substance: POMALIDOMIDE
     Dosage: 2 MILLIGRAM
     Route: 065
  2. NINLARO [Suspect]
     Active Substance: IXAZOMIB CITRATE
     Indication: PLASMA CELL MYELOMA
     Dosage: 4 MILLIGRAM
     Route: 048
     Dates: start: 20190402
  3. POMALYST [Suspect]
     Active Substance: POMALIDOMIDE
     Indication: PRODUCT USED FOR UNKNOWN INDICATION
     Dosage: 4 MILLIGRAM
     Route: 065

REACTIONS (10)
  - Dysphagia [Unknown]
  - Dizziness [Unknown]
  - Oesophageal pain [Unknown]
  - Rash [Unknown]
  - Fatigue [Unknown]
  - Burning sensation [Unknown]
  - Back pain [Unknown]
  - Off label use [Unknown]
  - Monoclonal immunoglobulin present [Unknown]
  - Diarrhoea [Unknown]
